FAERS Safety Report 11986884 (Version 1)
Quarter: 2016Q1

REPORT INFORMATION
  Report Type: Spontaneous
  Country: US (occurrence: None)
  Receive Date: 20160201
  Receipt Date: 20160201
  Transmission Date: 20160526
  Serious: Yes (Hospitalization)
  Sender: FDA-Public Use
  Company Number: None

PATIENT
  Age: 70 Year
  Sex: Male
  Weight: 98.3 kg

DRUGS (1)
  1. XARELTO [Suspect]
     Active Substance: RIVAROXABAN
     Indication: ATRIAL FIBRILLATION
     Dosage: 1 TABLET
     Route: 048
     Dates: start: 20160129, end: 20160129

REACTIONS (5)
  - Asthenia [None]
  - Anaemia [None]
  - Dyspnoea [None]
  - Gastric ulcer [None]
  - Fall [None]

NARRATIVE: CASE EVENT DATE: 20160130
